FAERS Safety Report 20890357 (Version 4)
Quarter: 2022Q3

REPORT INFORMATION
  Report Type: Report from Study
  Country: AR (occurrence: AR)
  Receive Date: 20220530
  Receipt Date: 20220802
  Transmission Date: 20221027
  Serious: Yes (Death, Hospitalization, Other)
  Sender: FDA-Public Use
  Company Number: AR-AMRYT PHARMACEUTICALS DAC-AEGR005900

PATIENT

DRUGS (1)
  1. MYALEPT [Suspect]
     Active Substance: METRELEPTIN
     Indication: Acquired generalised lipodystrophy
     Dosage: 5 MILLIGRAM
     Dates: start: 20210126

REACTIONS (5)
  - Cardio-respiratory arrest [Fatal]
  - Squamous cell carcinoma [Fatal]
  - Metastases to lung [Fatal]
  - Procedural haemorrhage [Fatal]
  - Nosocomial infection [Unknown]
